FAERS Safety Report 14746322 (Version 1)
Quarter: 2018Q2

REPORT INFORMATION
  Report Type: Other
  Country: US (occurrence: US)
  Receive Date: 20180411
  Receipt Date: 20180411
  Transmission Date: 20180711
  Serious: Yes (Hospitalization)
  Sender: FDA-Public Use
  Company Number: US-NAVINTA LLC-000058

PATIENT
  Age: 51 Year
  Sex: Female

DRUGS (1)
  1. ROPIVACAINE/ROPIVACAINE HYDROCHLORIDE [Suspect]
     Active Substance: ROPIVACAINE HYDROCHLORIDE
     Indication: PRODUCT USED FOR UNKNOWN INDICATION
     Dosage: 0.2 PERCENTAGE, 120 MG OR 1.8 MG PER KG OVER SIX HOURS

REACTIONS (1)
  - Anaesthetic complication [Recovered/Resolved]
